FAERS Safety Report 5011716-0 (Version None)
Quarter: 2006Q2

REPORT INFORMATION
  Report Type: 
  Country: None (occurrence: None)
  Receive Date: 20060526
  Receipt Date: 20060518
  Transmission Date: 20061013
  Serious: Yes (Hospitalization)
  Sender: FDA-Public Use
  Company Number: FR-JNJFOC-20060504558

PATIENT
  Age: 74 Year
  Sex: Male

DRUGS (5)
  1. REMICADE [Suspect]
     Indication: RHEUMATOID ARTHRITIS
     Route: 042
  2. BIPROFENID [Concomitant]
     Indication: RHEUMATOID ARTHRITIS
     Route: 048
  3. CORTANCYL [Concomitant]
     Indication: RHEUMATOID ARTHRITIS
     Route: 048
  4. OROCAL [Concomitant]
     Indication: OSTEOPOROSIS
     Route: 048
  5. OMEPRAZOLE [Concomitant]
     Route: 048

REACTIONS (5)
  - GLOMERULONEPHRITIS [None]
  - GLOMERULONEPHRITIS ACUTE [None]
  - GLOMERULONEPHRITIS PROLIFERATIVE [None]
  - NEPHROTIC SYNDROME [None]
  - OEDEMA PERIPHERAL [None]
